FAERS Safety Report 7445663-1 (Version None)
Quarter: 2011Q2

REPORT INFORMATION
  Report Type: 
  Country: None (occurrence: None)
  Receive Date: 20110429
  Receipt Date: 20110425
  Transmission Date: 20111010
  Serious: Yes (Other)
  Sender: FDA-Public Use
  Company Number: BR-ROCHE-773540

PATIENT

DRUGS (4)
  1. CEFTRIAXONE SODIUM [Suspect]
     Route: 065
  2. AMIKACIN [Interacting]
     Route: 065
  3. HEPARIN SODIUM [Interacting]
     Route: 065
  4. ASPIRIN [Interacting]
     Route: 065

REACTIONS (1)
  - DRUG INTERACTION [None]
